FAERS Safety Report 11751722 (Version 1)
Quarter: 2015Q4

REPORT INFORMATION
  Report Type: Report from Study
  Country: FR (occurrence: FR)
  Receive Date: 20151118
  Receipt Date: 20151118
  Transmission Date: 20160304
  Serious: Yes (Life-Threatening)
  Sender: FDA-Public Use
  Company Number: PHHO2010FR12574

PATIENT
  Age: 48 Year
  Sex: Male
  Weight: 77 kg

DRUGS (1)
  1. GILENYA [Suspect]
     Active Substance: FINGOLIMOD HYDROCHLORIDE
     Indication: PRIMARY PROGRESSIVE MULTIPLE SCLEROSIS
     Dosage: 0.5 MG, UNK
     Route: 048
     Dates: start: 20100622, end: 20100819

REACTIONS (3)
  - Skin discolouration [Not Recovered/Not Resolved]
  - Malignant melanoma in situ [Not Recovered/Not Resolved]
  - Skin lesion [Not Recovered/Not Resolved]

NARRATIVE: CASE EVENT DATE: 20100712
